FAERS Safety Report 7342525-5 (Version None)
Quarter: 2011Q1

REPORT INFORMATION
  Report Type: 
  Country: None (occurrence: None)
  Receive Date: 20110310
  Receipt Date: 20110228
  Transmission Date: 20110831
  Serious: Yes (Death, Hospitalization, Other)
  Sender: FDA-Public Use
  Company Number: JP-CELGENEUS-087-21880-10110108

PATIENT
  Age: 67 Year
  Sex: Female

DRUGS (19)
  1. LENADEX [Suspect]
     Indication: MULTIPLE MYELOMA
     Dosage: 4 MILLIGRAM
     Route: 048
     Dates: start: 20100901, end: 20100914
  2. LENADEX [Suspect]
     Dosage: 4 MILLIGRAM
     Route: 048
     Dates: start: 20101016, end: 20101022
  3. DEXART [Concomitant]
     Indication: MULTIPLE MYELOMA
     Dosage: 3.3 MILLIGRAM
     Route: 041
     Dates: start: 20100915, end: 20100921
  4. OXINORM [Concomitant]
     Dosage: 2.5 MILLIGRAM
     Route: 048
     Dates: start: 20100915
  5. PURSENNID [Concomitant]
     Indication: PROPHYLAXIS
     Dosage: 24 MILLIGRAM
     Route: 048
     Dates: start: 20100901, end: 20101013
  6. REVLIMID [Suspect]
     Dosage: 10 MILLIGRAM
     Route: 048
     Dates: start: 20101016, end: 20101022
  7. GOODMIN [Concomitant]
     Dosage: .25 MILLIGRAM
     Route: 048
     Dates: start: 20100901, end: 20101026
  8. BAKTAR [Concomitant]
     Indication: PROPHYLAXIS
     Dosage: 2 TABLET
     Route: 048
     Dates: start: 20101020, end: 20101026
  9. BAKTAR [Concomitant]
     Indication: PNEUMONIA
  10. REVLIMID [Suspect]
     Indication: MULTIPLE MYELOMA
     Dosage: 25 MILLIGRAM
     Route: 048
     Dates: start: 20100901, end: 20100914
  11. PARIET [Concomitant]
     Indication: PROPHYLAXIS
     Dosage: 10 MILLIGRAM
     Route: 048
     Dates: start: 20100901, end: 20101026
  12. OXYCONTIN [Concomitant]
     Dosage: 5 MILLIGRAM
     Route: 048
     Dates: start: 20100901, end: 20100914
  13. REVLIMID [Suspect]
     Dosage: 15 MILLIGRAM
     Route: 048
     Dates: start: 20100929, end: 20101005
  14. LENADEX [Suspect]
     Dosage: 4 MILLIGRAM
     Route: 048
     Dates: start: 20100922, end: 20101016
  15. STARSIS [Concomitant]
     Dosage: 90 MILLIGRAM
     Route: 048
     Dates: start: 20100929, end: 20101005
  16. ALOSENN [Concomitant]
     Dosage: .5 MILLIGRAM
     Route: 048
     Dates: start: 20101014, end: 20101020
  17. STARSIS [Concomitant]
     Indication: DIABETES MELLITUS
     Dosage: 270 MILLIGRAM
     Route: 048
     Dates: start: 20100901, end: 20100914
  18. ADALAT CC [Concomitant]
     Indication: HYPERTENSION
     Dosage: 20 MILLIGRAM
     Route: 048
     Dates: start: 20100901, end: 20100914
  19. ALOSENN [Concomitant]
     Indication: PROPHYLAXIS
     Dosage: .5 MILLIGRAM
     Route: 048
     Dates: start: 20100918, end: 20100924

REACTIONS (8)
  - THROMBOCYTOPENIA [None]
  - NEUTROPHIL COUNT DECREASED [None]
  - LEUKOPENIA [None]
  - RENAL IMPAIRMENT [None]
  - HAEMOGLOBIN DECREASED [None]
  - CYTOMEGALOVIRUS INFECTION [None]
  - HYPOKALAEMIA [None]
  - PNEUMONIA [None]
